FAERS Safety Report 7084481-3 (Version None)
Quarter: 2010Q4

REPORT INFORMATION
  Report Type: 
  Country: None (occurrence: None)
  Receive Date: 20101104
  Receipt Date: 20101029
  Transmission Date: 20110411
  Serious: Yes (Other)
  Sender: FDA-Public Use
  Company Number: BR-PFIZER INC-2010138105

PATIENT
  Age: 53 Year
  Sex: Female
  Weight: 52 kg

DRUGS (5)
  1. LIPITOR [Suspect]
     Indication: BLOOD CHOLESTEROL INCREASED
     Dosage: UNK
     Route: 048
     Dates: start: 20101006
  2. ENALAPRIL MALEATE [Concomitant]
     Indication: BLOOD PRESSURE INCREASED
     Dosage: 10 MG, 2X/DAY
     Route: 046
  3. METFORMIN [Concomitant]
     Indication: DIABETES MELLITUS
     Dosage: UNK
     Dates: start: 20080101
  4. ALPRAZOLAM [Concomitant]
     Dosage: 1 MG, UNK
     Dates: start: 20040101
  5. VINPOCETINE [Concomitant]
     Indication: MEMORY IMPAIRMENT
     Dosage: UNK
     Dates: start: 20100501

REACTIONS (2)
  - BLOOD PRESSURE INCREASED [None]
  - EPISTAXIS [None]
